FAERS Safety Report 15861494 (Version 1)
Quarter: 2019Q1

REPORT INFORMATION
  Report Type: Other
  Country: US (occurrence: US)
  Receive Date: 20190124
  Receipt Date: 20190124
  Transmission Date: 20190417
  Serious: Yes (Other)
  Sender: FDA-Public Use
  Company Number: US-BIOVITRUM-2019US0093

PATIENT
  Age: 65 Year
  Sex: Male

DRUGS (25)
  1. METFORMIN [Concomitant]
     Active Substance: METFORMIN HYDROCHLORIDE
  2. ISOSORBIDE MONONITRATE ER [Concomitant]
     Active Substance: ISOSORBIDE MONONITRATE
  3. LIPITOR [Concomitant]
     Active Substance: ATORVASTATIN CALCIUM
  4. LOSARTAN. [Concomitant]
     Active Substance: LOSARTAN
  5. ASPIRIN. [Concomitant]
     Active Substance: ASPIRIN
  6. HUMALOG [Concomitant]
     Active Substance: INSULIN LISPRO
  7. PROTONIX [Concomitant]
     Active Substance: PANTOPRAZOLE SODIUM
  8. METOLAZONE. [Concomitant]
     Active Substance: METOLAZONE
  9. PLAVIX [Concomitant]
     Active Substance: CLOPIDOGREL BISULFATE
  10. PROBIOTIC [Concomitant]
     Active Substance: PROBIOTICS NOS
  11. LASIX [Concomitant]
     Active Substance: FUROSEMIDE
  12. LORAZEPAM. [Concomitant]
     Active Substance: LORAZEPAM
  13. KINERET [Suspect]
     Active Substance: ANAKINRA
     Route: 058
     Dates: start: 2017, end: 20190111
  14. LANTUS [Concomitant]
     Active Substance: INSULIN GLARGINE
  15. FLEXERIL [Concomitant]
     Active Substance: CYCLOBENZAPRINE HYDROCHLORIDE
  16. MAGNESIUM [Concomitant]
     Active Substance: MAGNESIUM
  17. KLORCON [Concomitant]
  18. ULORIC [Concomitant]
     Active Substance: FEBUXOSTAT
  19. PROZAC [Concomitant]
     Active Substance: FLUOXETINE HYDROCHLORIDE
  20. RANEXA [Concomitant]
     Active Substance: RANOLAZINE
  21. TESTOSTERONE GEL [Concomitant]
     Active Substance: TESTOSTERONE
  22. GABAPENTIN. [Concomitant]
     Active Substance: GABAPENTIN
  23. NITROGLYCERINE SPRAY [Concomitant]
  24. MULTIVITAMINS [Concomitant]
     Active Substance: VITAMINS
  25. VITAMIN D [Concomitant]
     Active Substance: CHOLECALCIFEROL

REACTIONS (4)
  - Chest pain [Unknown]
  - Dyspnoea [Unknown]
  - Coronary artery thrombosis [Unknown]
  - Blood creatinine increased [Unknown]

NARRATIVE: CASE EVENT DATE: 2018
